FAERS Safety Report 8385801 (Version 3)
Quarter: 2013Q2

REPORT INFORMATION
  Report Type: Spontaneous
  Country: US (occurrence: None)
  Receive Date: 20111221
  Receipt Date: 20121227
  Transmission Date: 20140414
  Serious: Yes (Hospitalization)
  Sender: FDA-Public Use
  Company Number: PHHY2010US49520

PATIENT
  Age: 36 Year
  Sex: Female
  Weight: 46 kg

DRUGS (11)
  1. EXJADE [Suspect]
     Indication: SICKLE CELL ANAEMIA
     Dosage: 1000 MG, DAILY ORAL
     Route: 048
     Dates: start: 200711
  2. MORPHINE [Concomitant]
  3. BENADRYL ^ACHE^ (AMMONIUM CHLORIDE, DIPHENHYDRAMINE HYDROCHLORIDE, MENTHOL, SODIUM CITRATE) [Concomitant]
  4. HYDREA (HYDROXYCARBAMIDE) [Concomitant]
  5. FOLIC ACID [Concomitant]
  6. LORTAB (HYDROCODONE BITARTRATE, PARACETAMOL) [Concomitant]
  7. CALCIUM [Concomitant]
  8. VITAMIN D (ERGOCALCIFEROL) [Concomitant]
  9. NEXIUM (ESOMEPRAZOLE MAGNESIUM) [Concomitant]
  10. VICODIN (HYDROCODONE BITARTRATE, PARACETAMOL) [Concomitant]
  11. LISINOPRIL [Concomitant]

REACTIONS (4)
  - SICKLE CELL ANAEMIA WITH CRISIS [None]
  - Gastric disorder [None]
  - Abdominal discomfort [None]
  - Diarrhoea [None]
